FAERS Safety Report 13855967 (Version 2)
Quarter: 2017Q3

REPORT INFORMATION
  Report Type: Report from Study
  Country: US (occurrence: US)
  Receive Date: 20170810
  Receipt Date: 20170920
  Transmission Date: 20171127
  Serious: Yes (Other)
  Sender: FDA-Public Use
  Company Number: US-AMGEN-USASL2017118522

PATIENT
  Age: 67 Year
  Sex: Female

DRUGS (13)
  1. PANTOPRAZOLE [Concomitant]
     Active Substance: PANTOPRAZOLE
     Dosage: UNK
     Dates: start: 2012, end: 2017
  2. METOPROLOL TARTRATE. [Concomitant]
     Active Substance: METOPROLOL TARTRATE
     Indication: PALPITATIONS
     Dosage: UNK UNK, BID
     Route: 048
  3. PROLIA [Suspect]
     Active Substance: DENOSUMAB
     Dosage: 60 MG/ML, UNK
     Route: 058
  4. CENTRUM SILVER [Concomitant]
     Active Substance: MINERALS\VITAMINS
     Dosage: UNK UNK, QD
  5. CELEBREX [Concomitant]
     Active Substance: CELECOXIB
     Dosage: 200 MG, QD
  6. PROMETRIUM [Concomitant]
     Active Substance: PROGESTERONE
     Indication: OSTEOPOROSIS POSTMENOPAUSAL
     Dosage: 200 MG, QD
     Route: 048
     Dates: start: 2009
  7. CALCITRATE PLUS D [Concomitant]
     Dosage: UNK UNK, QD
     Route: 048
  8. PROLIA [Suspect]
     Active Substance: DENOSUMAB
     Dosage: 60 MG/ML, UNK
     Route: 058
  9. SYNTHROID [Concomitant]
     Active Substance: LEVOTHYROXINE SODIUM
     Dosage: 25 MUG, QD
     Route: 048
     Dates: start: 2009
  10. ESTRADIOL. [Concomitant]
     Active Substance: ESTRADIOL
     Dosage: 0.5 MG, QD
     Route: 048
  11. AMOXICILLIN. [Concomitant]
     Active Substance: AMOXICILLIN
     Dosage: 500 MG, UNK
     Route: 048
  12. PROLIA [Suspect]
     Active Substance: DENOSUMAB
     Indication: OSTEOPOROSIS POSTMENOPAUSAL
     Dosage: 60 MG/ML, Q6MO
     Route: 058
     Dates: start: 20151023
  13. PROLIA [Suspect]
     Active Substance: DENOSUMAB
     Dosage: 60 MG/ML, UNK
     Route: 058

REACTIONS (2)
  - Bone loss [Unknown]
  - Device related infection [Not Recovered/Not Resolved]
